FAERS Safety Report 13180594 (Version 1)
Quarter: 2017Q1

REPORT INFORMATION
  Report Type: Spontaneous
  Country: DE (occurrence: DE)
  Receive Date: 20170202
  Receipt Date: 20170202
  Transmission Date: 20170428
  Serious: Yes (Hospitalization, Other)
  Sender: FDA-Public Use
  Company Number: DE-JNJFOC-20161110288

PATIENT
  Age: 81 Year
  Sex: Female

DRUGS (8)
  1. VENLAFAXINE [Interacting]
     Active Substance: VENLAFAXINE HYDROCHLORIDE
     Indication: MAJOR DEPRESSION
     Route: 065
  2. VENLAFAXINE [Interacting]
     Active Substance: VENLAFAXINE HYDROCHLORIDE
     Indication: MAJOR DEPRESSION
     Dosage: DOSE REDUCED
     Route: 065
  3. METRONIDAZOLE. [Interacting]
     Active Substance: METRONIDAZOLE
     Indication: GASTROENTERITIS CLOSTRIDIAL
     Route: 065
  4. CEFUROXIME. [Concomitant]
     Active Substance: CEFUROXIME
     Indication: URINARY TRACT INFECTION
     Route: 065
  5. RISPERIDONE. [Suspect]
     Active Substance: RISPERIDONE
     Indication: MAJOR DEPRESSION
     Route: 048
  6. VENLAFAXINE [Interacting]
     Active Substance: VENLAFAXINE HYDROCHLORIDE
     Indication: MAJOR DEPRESSION
     Dosage: UPTO 187.5 MG
     Route: 065
  7. RISPERIDONE. [Suspect]
     Active Substance: RISPERIDONE
     Indication: MAJOR DEPRESSION
     Dosage: UPTO 4 MG
     Route: 048
  8. RISPERIDONE. [Suspect]
     Active Substance: RISPERIDONE
     Indication: MAJOR DEPRESSION
     Dosage: DOSE REDUCED
     Route: 048

REACTIONS (6)
  - Off label use [Unknown]
  - Orthostatic hypotension [Recovering/Resolving]
  - Hyponatraemia [Recovering/Resolving]
  - Drug interaction [Recovering/Resolving]
  - Drug level increased [Recovering/Resolving]
  - Product use issue [Unknown]
